FAERS Safety Report 21411847 (Version 1)
Quarter: 2022Q4

REPORT INFORMATION
  Report Type: Spontaneous
  Country: US (occurrence: US)
  Receive Date: 20221005
  Receipt Date: 20221005
  Transmission Date: 20230113
  Serious: No
  Sender: FDA-Public Use
  Company Number: US-BAYER-2022A133080

PATIENT
  Age: 72 Year
  Sex: Male

DRUGS (2)
  1. MIRALAX [Suspect]
     Active Substance: POLYETHYLENE GLYCOL 3350
     Indication: Gastrointestinal disorder
     Dosage: 2 DF, HS
     Route: 048
     Dates: start: 202209, end: 20220921
  2. STOOL SOFTENER (DOCUSATE) [Suspect]
     Active Substance: DOCUSATE

REACTIONS (3)
  - Diarrhoea [Not Recovered/Not Resolved]
  - Abnormal faeces [Unknown]
  - Incorrect dose administered [None]

NARRATIVE: CASE EVENT DATE: 20220901
